FAERS Safety Report 8658964 (Version 3)
Quarter: 2013Q1

REPORT INFORMATION
  Report Type: Report from Study
  Country: BR (occurrence: BR)
  Receive Date: 20120710
  Receipt Date: 20130125
  Transmission Date: 20140127
  Serious: Yes (Hospitalization, Other)
  Sender: FDA-Public Use
  Company Number: BR-ROCHE-775624

PATIENT
  Age: 49 None
  Sex: Female
  Weight: 49 kg

DRUGS (31)
  1. RITUXIMAB [Suspect]
     Indication: SJOGREN^S SYNDROME
     Route: 042
     Dates: start: 20100701, end: 20110831
  2. RITUXIMAB [Suspect]
     Indication: SYSTEMIC LUPUS ERYTHEMATOSUS
     Route: 042
  3. RITUXIMAB [Suspect]
     Route: 042
  4. RITUXIMAB [Suspect]
     Route: 042
  5. METICORTEN [Concomitant]
     Route: 065
  6. ASA [Concomitant]
  7. TORLOS [Concomitant]
     Route: 065
  8. AMLODIPINE [Concomitant]
  9. LASIX [Concomitant]
     Route: 065
  10. RIVOTRIL [Concomitant]
     Dosage: 2 DROPS
     Route: 065
  11. AMYTRIL [Concomitant]
     Route: 065
  12. AMYTRIL [Concomitant]
     Route: 065
  13. CALCIUM CARBONATE [Concomitant]
  14. OMEPRAZOLE [Concomitant]
     Route: 065
  15. METFORMIN [Concomitant]
  16. ARAVA [Concomitant]
  17. ATENOLOL [Concomitant]
  18. ENDOFOLIN [Concomitant]
  19. AMYTRIL [Concomitant]
  20. OMEPRAZOLE [Concomitant]
  21. DEPURAN [Concomitant]
     Dosage: 5 DROPS
     Route: 065
  22. CARVEDILOL [Concomitant]
     Route: 065
  23. LOSARTAN [Concomitant]
     Route: 065
  24. DOMPERIDON [Concomitant]
     Route: 065
  25. METFORMIN [Concomitant]
     Route: 065
  26. ALDACTONE [Concomitant]
     Route: 065
  27. VASOGARD [Concomitant]
     Route: 065
  28. NPH INSULIN [Concomitant]
     Route: 065
  29. AZATHIOPRINE [Concomitant]
  30. REUQUINOL [Concomitant]
     Dosage: HALF
     Route: 065
  31. ACETYLSALICYLIC ACID [Concomitant]
     Route: 065

REACTIONS (18)
  - Drug ineffective [Unknown]
  - Pneumonia [Recovered/Resolved]
  - Fall [Recovered/Resolved]
  - Polymyositis [Unknown]
  - Myocardial infarction [Recovered/Resolved]
  - Convulsion [Recovered/Resolved]
  - Musculoskeletal disorder [Recovered/Resolved with Sequelae]
  - Cardiac disorder [Recovered/Resolved]
  - Diabetes mellitus [Recovered/Resolved]
  - Systemic lupus erythematosus [Not Recovered/Not Resolved]
  - Hypoglycaemia [Unknown]
  - Skin ulcer [Recovered/Resolved]
  - Swelling [Not Recovered/Not Resolved]
  - Limb injury [Recovered/Resolved]
  - Asthenia [Recovered/Resolved]
  - Weight decreased [Unknown]
  - Renal impairment [Not Recovered/Not Resolved]
  - Hypophagia [Not Recovered/Not Resolved]
